FAERS Safety Report 16652367 (Version 1)
Quarter: 2019Q3

REPORT INFORMATION
  Report Type: Spontaneous
  Country: US (occurrence: US)
  Receive Date: 20190731
  Receipt Date: 20190731
  Transmission Date: 20191004
  Serious: No
  Sender: FDA-Public Use
  Company Number: US-FLEXION THERAPEUTICS, INC.-2019FLS000071

PATIENT
  Age: 54 Year
  Sex: Female

DRUGS (1)
  1. ZILRETTA [Suspect]
     Active Substance: TRIAMCINOLONE ACETONIDE
     Indication: OSTEOARTHRITIS
     Route: 014
     Dates: start: 20190410, end: 20190410

REACTIONS (3)
  - Arthralgia [Unknown]
  - Joint swelling [Unknown]
  - Synovial cyst [Unknown]

NARRATIVE: CASE EVENT DATE: 20190412
